FAERS Safety Report 4391446-9 (Version None)
Quarter: 2004Q3

REPORT INFORMATION
  Report Type: 
  Country: None (occurrence: None)
  Receive Date: 20040707
  Receipt Date: 20040618
  Transmission Date: 20050211
  Serious: Yes (Disabling)
  Sender: FDA-Public Use
  Company Number: JP-GLAXOSMITHKLINE-B0336217A

PATIENT
  Age: 68 Year
  Sex: Female
  Weight: 44 kg

DRUGS (10)
  1. VALTREX [Suspect]
     Dosage: 1000MG THREE TIMES PER DAY
     Route: 048
     Dates: start: 20040614, end: 20040617
  2. BLOPRESS [Concomitant]
     Indication: HYPERTENSION
     Route: 048
  3. COMELIAN [Concomitant]
     Dosage: 150MG PER DAY
     Route: 048
     Dates: start: 20040614
  4. NORVASC [Concomitant]
     Indication: HYPERTENSION
     Dosage: 5MG PER DAY
     Route: 048
     Dates: start: 20040614
  5. BAYASPIRIN [Concomitant]
     Dosage: 100MG PER DAY
     Route: 048
  6. FLUITRAN [Concomitant]
     Indication: HYPERTENSION
     Dosage: 1MG PER DAY
     Route: 048
  7. DEPAS [Concomitant]
     Indication: INSOMNIA
     Dosage: 2MG PER DAY
     Route: 048
  8. PROTECADIN [Concomitant]
     Indication: GASTRIC ULCER
     Route: 048
  9. GASTROM [Concomitant]
     Indication: GASTRIC ULCER
     Route: 048
  10. LEVOFLOXACIN [Concomitant]
     Dosage: 300MG PER DAY
     Route: 048
     Dates: start: 20040611

REACTIONS (10)
  - CHEILITIS [None]
  - EATING DISORDER [None]
  - FEELING ABNORMAL [None]
  - HEADACHE [None]
  - MALAISE [None]
  - OCULOMUCOCUTANEOUS SYNDROME [None]
  - PHARYNGOLARYNGEAL PAIN [None]
  - PHARYNX DISCOMFORT [None]
  - PYREXIA [None]
  - SWELLING FACE [None]
